FAERS Safety Report 11050628 (Version 1)
Quarter: 2015Q2

REPORT INFORMATION
  Report Type: Spontaneous
  Country: US (occurrence: US)
  Receive Date: 20150421
  Receipt Date: 20150421
  Transmission Date: 20150821
  Serious: Yes (Other)
  Sender: FDA-Public Use
  Company Number: US-AMGEN-USASP2015037277

PATIENT
  Sex: Male

DRUGS (5)
  1. ENBREL [Suspect]
     Active Substance: ETANERCEPT
     Indication: PRODUCT USED FOR UNKNOWN INDICATION
     Dosage: UNK
     Route: 065
  2. HUMIRA [Suspect]
     Active Substance: ADALIMUMAB
     Dosage: UNK
     Route: 065
     Dates: start: 20150123
  3. FOLIC ACID. [Concomitant]
     Active Substance: FOLIC ACID
     Dosage: UNK
  4. METHOTREXATE [Concomitant]
     Active Substance: METHOTREXATE
     Dosage: UNK
  5. HUMIRA [Suspect]
     Active Substance: ADALIMUMAB
     Indication: PSORIATIC ARTHROPATHY
     Dosage: UNK
     Route: 065

REACTIONS (14)
  - Urticaria [Recovered/Resolved]
  - Dyspnoea [Recovered/Resolved]
  - Joint stiffness [Unknown]
  - Hypersensitivity [Recovered/Resolved]
  - Chest discomfort [Recovered/Resolved]
  - Pain in extremity [Unknown]
  - Arthralgia [Unknown]
  - Pruritus [Unknown]
  - Pain [Unknown]
  - Injection site erythema [Unknown]
  - Injection site urticaria [Unknown]
  - Wheezing [Recovered/Resolved]
  - Injection site warmth [Unknown]
  - Injection site swelling [Unknown]

NARRATIVE: CASE EVENT DATE: 201501
